FAERS Safety Report 13732865 (Version 1)
Quarter: 2017Q3

REPORT INFORMATION
  Report Type: Other
  Country: None (occurrence: US)
  Receive Date: 20170707
  Receipt Date: 20170707
  Transmission Date: 20171127
  Serious: Yes (Hospitalization, Other)
  Sender: FDA-Public Use
  Company Number: US-GUTHY-RENKER LLC-2023093

PATIENT
  Age: 52 Year
  Sex: Female

DRUGS (2)
  1. UNDISCLOSED - ANTIBIOTICS AND VITAMIN SUPPLEMENTS [Concomitant]
  2. PA + MARK CORRECTING PADS [Suspect]
     Active Substance: GLYCOLIC ACID\SALICYLIC ACID
     Indication: ACNE
     Route: 061
     Dates: start: 20150411, end: 20150901

REACTIONS (1)
  - Pneumonia staphylococcal [Not Recovered/Not Resolved]

NARRATIVE: CASE EVENT DATE: 20150901
